FAERS Safety Report 9187822 (Version 1)
Quarter: 2013Q1

REPORT INFORMATION
  Report Type: Spontaneous
  Country: US (occurrence: US)
  Receive Date: 20130325
  Receipt Date: 20130325
  Transmission Date: 20140127
  Serious: No
  Sender: FDA-Public Use
  Company Number: US-MYLANLABS-2012S1010907

PATIENT
  Age: 65 Year
  Sex: Female
  Weight: 135.17 kg

DRUGS (8)
  1. FENTANYL TRANSDERMAL SYSTEM [Suspect]
     Indication: PAIN
     Route: 062
     Dates: start: 20120326, end: 20120509
  2. FENTANYL TRANSDERMAL SYSTEM [Suspect]
     Indication: PAIN
     Dosage: Q72
     Route: 062
     Dates: start: 20120509, end: 20120523
  3. OXYCONTIN [Concomitant]
     Indication: PAIN
  4. SAVELLA [Concomitant]
     Indication: FIBROMYALGIA
     Dates: start: 201111
  5. ZYRTEC [Concomitant]
  6. HUMALOG [Concomitant]
     Indication: DIABETES MELLITUS
     Route: 058
  7. LANTUS [Concomitant]
     Indication: DIABETES MELLITUS
  8. SYMLIN [Concomitant]
     Indication: WEIGHT DECREASED

REACTIONS (7)
  - Drug effect decreased [Not Recovered/Not Resolved]
  - Pain [Not Recovered/Not Resolved]
  - Application site pruritus [Not Recovered/Not Resolved]
  - Abnormal dreams [Not Recovered/Not Resolved]
  - Dyspnoea [Not Recovered/Not Resolved]
  - Hyperhidrosis [Not Recovered/Not Resolved]
  - Hot flush [Not Recovered/Not Resolved]
